FAERS Safety Report 5084641-7 (Version None)
Quarter: 2006Q3

REPORT INFORMATION
  Report Type: 
  Country: None (occurrence: None)
  Receive Date: 20060821
  Receipt Date: 20060612
  Transmission Date: 20061208
  Serious: Yes (Other)
  Sender: FDA-Public Use
  Company Number: 2006UW12590

PATIENT
  Age: 44 Year
  Sex: Female

DRUGS (2)
  1. ARIMIDEX [Suspect]
     Indication: BREAST CANCER
     Route: 048
     Dates: start: 20051101, end: 20060201
  2. CHEMOTHERAPY [Suspect]

REACTIONS (7)
  - DEPRESSION [None]
  - DIZZINESS [None]
  - FATIGUE [None]
  - LIBIDO DECREASED [None]
  - MUSCULOSKELETAL DISCOMFORT [None]
  - PERIPHERAL SENSORY NEUROPATHY [None]
  - VISUAL DISTURBANCE [None]
